FAERS Safety Report 5917035-X (Version None)
Quarter: 2008Q4

REPORT INFORMATION
  Report Type: 
  Country: None (occurrence: None)
  Receive Date: 20081009
  Receipt Date: 20081009
  Transmission Date: 20090506
  Serious: Yes (Hospitalization)
  Sender: FDA-Public Use
  Company Number: None

PATIENT
  Age: 56 Year
  Sex: Male
  Weight: 88.4514 kg

DRUGS (1)
  1. CLEOCIN [Suspect]
     Indication: DENTAL DISORDER PROPHYLAXIS
     Dosage: TID DENTAL
     Route: 004
     Dates: start: 20070915, end: 20070925

REACTIONS (2)
  - RECTAL DISCHARGE [None]
  - STRESS [None]
